FAERS Safety Report 4919843-0 (Version None)
Quarter: 2006Q1

REPORT INFORMATION
  Report Type: 
  Country: None (occurrence: None)
  Receive Date: 20060217
  Receipt Date: 20060213
  Transmission Date: 20060701
  Serious: Yes (Other)
  Sender: FDA-Public Use
  Company Number: 2006-02-0723

PATIENT
  Sex: Male

DRUGS (1)
  1. TEMODAR [Suspect]
     Indication: OLIGODENDROGLIOMA
     Dosage: ORAL
     Route: 048

REACTIONS (3)
  - IMPAIRED HEALING [None]
  - TIBIA FRACTURE [None]
  - TRAUMATIC FRACTURE [None]
